FAERS Safety Report 8578749-9 (Version None)
Quarter: 2012Q3

REPORT INFORMATION
  Report Type: 
  Country: None (occurrence: None)
  Receive Date: 20120808
  Receipt Date: 20120801
  Transmission Date: 20120928
  Serious: Yes (Hospitalization)
  Sender: FDA-Public Use
  Company Number: US-SANOFI-AVENTIS-2012SA051371

PATIENT
  Age: 59 Year
  Sex: Male
  Weight: 106 kg

DRUGS (13)
  1. PLAQUENIL [Suspect]
     Indication: SARCOIDOSIS
     Route: 048
     Dates: start: 20101124
  2. SPIRIVA [Concomitant]
  3. PREDNISONE [Concomitant]
  4. NORVASC [Concomitant]
  5. PRAVASTATIN [Concomitant]
  6. OXYGEN [Concomitant]
  7. JANUVIA [Concomitant]
  8. SINGULAIR [Concomitant]
  9. VITAMIN D [Concomitant]
  10. DIGOXIN [Concomitant]
  11. ALBUTEROL [Concomitant]
  12. ASPIRIN [Concomitant]
  13. FOSAMAX [Concomitant]

REACTIONS (1)
  - RESPIRATORY DISORDER [None]
